FAERS Safety Report 11444036 (Version 2)
Quarter: 2015Q4

REPORT INFORMATION
  Report Type: Spontaneous
  Country: US (occurrence: US)
  Receive Date: 20150901
  Receipt Date: 20151019
  Transmission Date: 20160304
  Serious: No
  Sender: FDA-Public Use
  Company Number: US-AMGEN-USASP2015087530

PATIENT
  Age: 58 Year
  Sex: Female

DRUGS (19)
  1. LYRICA PGN-150 [Concomitant]
     Dosage: 150 MG, UNK
  2. PROVENTIL HFA                      /00139501/ [Concomitant]
     Dosage: 6.7 UNK -90 MCG
  3. MONTELUKAST [Concomitant]
     Active Substance: MONTELUKAST SODIUM
     Dosage: 10 MG, UNK
  4. PREMPRO PAK 28^S [Concomitant]
     Dosage: 0.625/2.5-2.5MG
  5. PREDNISONE. [Concomitant]
     Active Substance: PREDNISONE
     Dosage: UNK
  6. CIMZIA [Suspect]
     Active Substance: CERTOLIZUMAB PEGOL
     Indication: RHEUMATOID ARTHRITIS
     Dosage: 200 MG EVERY OTHER WEEK
     Route: 058
     Dates: start: 201506
  7. ARAVA [Concomitant]
     Active Substance: LEFLUNOMIDE
     Dosage: 20 MG, UNK
  8. LEFLUNOMIDE. [Concomitant]
     Active Substance: LEFLUNOMIDE
     Dosage: 20 MG, UNK
  9. PROPRANOLOL HCL ER [Concomitant]
     Dosage: 60 MG, UNK
  10. TERODINE TART ER [Concomitant]
     Dosage: 2 MG, UNK
  11. ENBREL [Suspect]
     Active Substance: ETANERCEPT
     Indication: RHEUMATOID ARTHRITIS
     Dosage: 50 MG, QWK
     Route: 058
     Dates: start: 20110805
  12. KLOR-CON M20 [Concomitant]
     Active Substance: POTASSIUM CHLORIDE
     Dosage: 20 MEQ, UNK
  13. BUMETANIDE. [Concomitant]
     Active Substance: BUMETANIDE
     Dosage: 2 MG, UNK
  14. ALPRAZOLAM. [Concomitant]
     Active Substance: ALPRAZOLAM
     Dosage: 0.5 MG, UNK
  15. RAYOS [Concomitant]
     Active Substance: PREDNISONE
     Dosage: 2 MG, UNK
  16. HYDROXYCHLOROQUINE ZC38 [Concomitant]
     Dosage: 200 MG, UNK
  17. TRAMADOL HCL [Concomitant]
     Active Substance: TRAMADOL HYDROCHLORIDE
     Dosage: 50 MG, UNK
  18. LEVOXYL [Concomitant]
     Active Substance: LEVOTHYROXINE SODIUM
     Dosage: 112 MCG, UNK
  19. ESZOPICLONE RDY/617 [Concomitant]
     Dosage: 3 MG, UNK

REACTIONS (5)
  - Bursitis [Recovered/Resolved]
  - Injection site pruritus [Recovered/Resolved]
  - Drug ineffective [Unknown]
  - Injection site reaction [Recovered/Resolved]
  - Injection site urticaria [Recovered/Resolved]

NARRATIVE: CASE EVENT DATE: 2015
